FAERS Safety Report 18317817 (Version 1)
Quarter: 2020Q3

REPORT INFORMATION
  Report Type: Spontaneous
  Country: US (occurrence: US)
  Receive Date: 20200928
  Receipt Date: 20200928
  Transmission Date: 20201103
  Serious: No
  Sender: FDA-Public Use
  Company Number: US-ALLERGAN-2030191US

PATIENT
  Age: 40 Year
  Sex: Female

DRUGS (4)
  1. PROGESTERONE UNK [Suspect]
     Active Substance: PROGESTERONE
     Indication: PREGNANCY
     Route: 065
  2. LEXAPRO [Suspect]
     Active Substance: ESCITALOPRAM OXALATE
     Indication: DEPRESSION
     Route: 065
  3. ESTRADIOL UNK [Suspect]
     Active Substance: ESTRADIOL
     Indication: PREGNANCY
     Route: 065
  4. ABILIFY [Suspect]
     Active Substance: ARIPIPRAZOLE
     Indication: DEPRESSION
     Dosage: 2.5 MG
     Route: 065

REACTIONS (2)
  - Premature labour [Unknown]
  - Pregnancy [Unknown]
